FAERS Safety Report 17211656 (Version 2)
Quarter: 2020Q1

REPORT INFORMATION
  Report Type: Spontaneous
  Country: CA (occurrence: CA)
  Receive Date: 20191229
  Receipt Date: 20200123
  Transmission Date: 20200409
  Serious: Yes (Hospitalization, Other)
  Sender: FDA-Public Use
  Company Number: CA-DRREDDYS-USA/CAN/19/0117839

PATIENT
  Age: 70 Year
  Sex: Female

DRUGS (1)
  1. FONDAPARINUX SODIUM. [Suspect]
     Active Substance: FONDAPARINUX SODIUM
     Indication: HEPARIN-INDUCED THROMBOCYTOPENIA
     Route: 058

REACTIONS (1)
  - Therapeutic product cross-reactivity [Unknown]
